FAERS Safety Report 7853623-1 (Version None)
Quarter: 2011Q4

REPORT INFORMATION
  Report Type: 
  Country: None (occurrence: None)
  Receive Date: 20111026
  Receipt Date: 20111020
  Transmission Date: 20120403
  Serious: Yes (Other)
  Sender: FDA-Public Use
  Company Number: JP-PFIZER INC-2011254385

PATIENT
  Age: 78 Year
  Sex: Male

DRUGS (4)
  1. LENDORMIN [Concomitant]
     Dosage: UNK
     Route: 048
  2. PRAVASTATIN SODIUM [Concomitant]
     Dosage: UNK
     Route: 048
  3. TAMSULOSIN HCL [Concomitant]
     Dosage: UNK
     Route: 048
  4. LYRICA [Suspect]
     Dosage: UNK
     Route: 048

REACTIONS (3)
  - BLADDER CANCER [None]
  - PROSTATOMEGALY [None]
  - URINARY RETENTION [None]
